FAERS Safety Report 11647533 (Version 1)
Quarter: 2015Q4

REPORT INFORMATION
  Report Type: Spontaneous
  Country: US (occurrence: US)
  Receive Date: 20151021
  Receipt Date: 20151021
  Transmission Date: 20160304
  Serious: No
  Sender: FDA-Public Use
  Company Number: US-009507513-1510USA009285

PATIENT
  Sex: Male

DRUGS (2)
  1. LOSARTAN POTASSIUM TABLETS [Suspect]
     Active Substance: LOSARTAN POTASSIUM
     Dosage: UNK
     Route: 048
  2. AMLODIPINE [Suspect]
     Active Substance: AMLODIPINE BESYLATE
     Dosage: UNK

REACTIONS (5)
  - Vertigo [Unknown]
  - Dizziness [Unknown]
  - Feeling abnormal [Unknown]
  - Headache [Unknown]
  - Visual impairment [Unknown]
